FAERS Safety Report 17880625 (Version 2)
Quarter: 2022Q1

REPORT INFORMATION
  Report Type: Report from Study
  Country: FR (occurrence: FR)
  Receive Date: 20200610
  Receipt Date: 20220127
  Transmission Date: 20220423
  Serious: Yes (Other)
  Sender: FDA-Public Use
  Company Number: FR-PFIZER INC-2020225154

PATIENT
  Age: 43 Year
  Sex: Male
  Weight: 77 kg

DRUGS (2)
  1. BOSULIF [Suspect]
     Active Substance: BOSUTINIB MONOHYDRATE
     Dosage: 500 MG, DAILY
     Dates: start: 20190906, end: 20200520
  2. PONATINIB [Concomitant]
     Active Substance: PONATINIB

REACTIONS (1)
  - Gene mutation [Recovered/Resolved]

NARRATIVE: CASE EVENT DATE: 20200430
